FAERS Safety Report 19853291 (Version 3)
Quarter: 2022Q4

REPORT INFORMATION
  Report Type: Spontaneous
  Country: US (occurrence: US)
  Receive Date: 20210919
  Receipt Date: 20221116
  Transmission Date: 20230113
  Serious: No
  Sender: FDA-Public Use
  Company Number: US-SA-SAC20210915000970

PATIENT
  Age: 63 Year
  Sex: Female

DRUGS (2)
  1. DUPIXENT [Suspect]
     Active Substance: DUPILUMAB
     Indication: Dermatitis atopic
     Dosage: 300 MG, QOW
     Route: 058
     Dates: start: 20210614, end: 202111
  2. DUPIXENT [Suspect]
     Active Substance: DUPILUMAB
     Indication: Eczema

REACTIONS (9)
  - Ocular discomfort [Recovering/Resolving]
  - Eye disorder [Unknown]
  - Eye irritation [Unknown]
  - Lacrimation increased [Unknown]
  - Vision blurred [Unknown]
  - Photophobia [Unknown]
  - Asthenopia [Unknown]
  - Conjunctivitis [Unknown]
  - Eye swelling [Unknown]

NARRATIVE: CASE EVENT DATE: 20210101
